FAERS Safety Report 6540188-X (Version None)
Quarter: 2010Q1

REPORT INFORMATION
  Report Type: 
  Country: None (occurrence: None)
  Receive Date: 20100112
  Receipt Date: 20091228
  Transmission Date: 20100710
  Serious: Yes (Other)
  Sender: FDA-Public Use
  Company Number: AUR-APL-2010-00070

PATIENT
  Age: 63 Year
  Sex: Male

DRUGS (9)
  1. METFORMIN HCL [Suspect]
     Dosage: 850MG
  2. CISPLATIN [Suspect]
  3. GEMCITABINE [Concomitant]
  4. PIPERACILLIN SODIUM AND TAZOBACTAM SODIUM [Concomitant]
  5. LINEZOLID [Concomitant]
  6. ESOMEPRAXOLE [Concomitant]
  7. PARACETAMOL [Concomitant]
  8. LISINOPRIL AND HYDROCHLOROTHIAZIDE [Concomitant]
  9. HYDROCHLOROTHIAZIDE [Concomitant]

REACTIONS (4)
  - BLOOD LACTATE DEHYDROGENASE INCREASED [None]
  - DRUG INTERACTION [None]
  - GAMMA-GLUTAMYLTRANSFERASE INCREASED [None]
  - RENAL IMPAIRMENT [None]
